FAERS Safety Report 17414740 (Version 1)
Quarter: 2020Q1

REPORT INFORMATION
  Report Type: Spontaneous
  Country: US (occurrence: US)
  Receive Date: 20200213
  Receipt Date: 20200213
  Transmission Date: 20200409
  Serious: Yes (Other)
  Sender: FDA-Public Use
  Company Number: US-GILEAD-2020-0450762

PATIENT
  Age: 70 Year
  Weight: 177.5 kg

DRUGS (2)
  1. TRAMADOL. [Concomitant]
     Active Substance: TRAMADOL
     Dosage: UNK
     Dates: end: 20190531
  2. YESCARTA [Suspect]
     Active Substance: AXICABTAGENE CILOLEUCEL
     Indication: DIFFUSE LARGE B-CELL LYMPHOMA
     Dosage: 68 ML, ONCE
     Route: 042
     Dates: start: 20190415, end: 20190415

REACTIONS (5)
  - Encephalopathy [Unknown]
  - Cytokine release syndrome [Unknown]
  - Pyrexia [Unknown]
  - Metabolic encephalopathy [Recovered/Resolved]
  - Neurotoxicity [Unknown]

NARRATIVE: CASE EVENT DATE: 20190416
